FAERS Safety Report 17493827 (Version 1)
Quarter: 2020Q1

REPORT INFORMATION
  Report Type: Spontaneous
  Country: FR (occurrence: FR)
  Receive Date: 20200303
  Receipt Date: 20200303
  Transmission Date: 20200409
  Serious: Yes (Death, Hospitalization, Other)
  Sender: FDA-Public Use
  Company Number: FR-JNJFOC-20191244787

PATIENT
  Sex: Male

DRUGS (1)
  1. ZYTIGA [Suspect]
     Active Substance: ABIRATERONE ACETATE
     Indication: PROSTATE CANCER METASTATIC
     Route: 048

REACTIONS (8)
  - Hepatotoxicity [Unknown]
  - Acute coronary syndrome [Unknown]
  - Neurotoxicity [Unknown]
  - Tachyarrhythmia [Fatal]
  - Hypokalaemia [Unknown]
  - Hypertension [Unknown]
  - Cardiac failure [Fatal]
  - Oedema [Unknown]
